FAERS Safety Report 10469391 (Version 1)
Quarter: 2014Q3

REPORT INFORMATION
  Report Type: Spontaneous
  Country: US (occurrence: None)
  Receive Date: 20140922
  Receipt Date: 20140922
  Transmission Date: 20150326
  Serious: No
  Sender: FDA-Public Use
  Company Number: None

PATIENT
  Age: 26 Year
  Sex: Female
  Weight: 58.97 kg

DRUGS (1)
  1. AMPHETAMINE SALTS [Suspect]
     Active Substance: AMPHETAMINE ASPARTATE\AMPHETAMINE SULFATE\DEXTROAMPHETAMINE SACCHARATE\DEXTROAMPHETAMINE SULFATE
     Indication: ATTENTION DEFICIT/HYPERACTIVITY DISORDER
     Dosage: 1 PILL FOUR TIMES DAILY TAKEN BY MOUTH
     Route: 048
     Dates: start: 20140828, end: 20140921

REACTIONS (5)
  - Dizziness [None]
  - Product substitution issue [None]
  - Drug ineffective [None]
  - Headache [None]
  - Syncope [None]

NARRATIVE: CASE EVENT DATE: 20140921
